FAERS Safety Report 7150566-6 (Version None)
Quarter: 2010Q4

REPORT INFORMATION
  Report Type: 
  Country: None (occurrence: None)
  Receive Date: 20101206
  Receipt Date: 20101206
  Transmission Date: 20110411
  Serious: Yes (Hospitalization)
  Sender: FDA-Public Use
  Company Number: None

PATIENT
  Age: 55 Year
  Sex: Male
  Weight: 101.6 kg

DRUGS (1)
  1. NALTREXONE [Suspect]
     Indication: ABSTAINS FROM ALCOHOL
     Dosage: 380 MG OTHER IM
     Route: 030
     Dates: start: 20100730, end: 20101025

REACTIONS (2)
  - HOMICIDAL IDEATION [None]
  - SUICIDAL IDEATION [None]
